FAERS Safety Report 19929441 (Version 19)
Quarter: 2024Q1

REPORT INFORMATION
  Report Type: Spontaneous
  Country: US (occurrence: US)
  Receive Date: 20211007
  Receipt Date: 20240329
  Transmission Date: 20240410
  Serious: No
  Sender: FDA-Public Use
  Company Number: US-PFIZER INC-202100929855

PATIENT
  Age: 74 Year
  Sex: Female

DRUGS (2)
  1. BOSULIF [Suspect]
     Active Substance: BOSUTINIB MONOHYDRATE
     Indication: Chronic myeloid leukaemia
     Dosage: 4 TABLET (OF 100 MG) ORAL DAILY FOR 30 DAYS
     Route: 048
  2. BOSULIF [Suspect]
     Active Substance: BOSUTINIB MONOHYDRATE
     Dosage: 100 MG

REACTIONS (19)
  - Product dose omission issue [Unknown]
  - Visual impairment [Unknown]
  - Malaise [Unknown]
  - Peripheral swelling [Unknown]
  - Pain in extremity [Unknown]
  - Foot fracture [Unknown]
  - Tooth injury [Unknown]
  - Skin disorder [Unknown]
  - Eye disorder [Unknown]
  - Tooth disorder [Unknown]
  - Immune system disorder [Unknown]
  - Depression [Unknown]
  - Bone disorder [Unknown]
  - Gait inability [Not Recovered/Not Resolved]
  - Arthralgia [Unknown]
  - Dyspnoea [Unknown]
  - Gout [Unknown]
  - Memory impairment [Unknown]
  - Brain fog [Unknown]

NARRATIVE: CASE EVENT DATE: 20210822
